FAERS Safety Report 23486329 (Version 1)
Quarter: 2024Q1

REPORT INFORMATION
  Report Type: Spontaneous
  Country: None (occurrence: HR)
  Receive Date: 20240206
  Receipt Date: 20240206
  Transmission Date: 20240410
  Serious: Yes (Congenital Anomaly)
  Sender: FDA-Public Use
  Company Number: HR-Nostrum Laboratories, Inc.-2152664

PATIENT
  Sex: Female

DRUGS (1)
  1. CARBAMAZEPINE [Suspect]
     Active Substance: CARBAMAZEPINE
     Indication: Seizure
     Route: 048

REACTIONS (1)
  - Congenital diaphragmatic hernia [Unknown]
